FAERS Safety Report 15326950 (Version 2)
Quarter: 2018Q3

REPORT INFORMATION
  Report Type: Spontaneous
  Country: JP (occurrence: JP)
  Receive Date: 20180828
  Receipt Date: 20180912
  Transmission Date: 20181010
  Serious: Yes (Hospitalization, Other)
  Sender: FDA-Public Use
  Company Number: JP-FERRINGPH-2018FE04729

PATIENT

DRUGS (1)
  1. LUTINUS [Suspect]
     Active Substance: PROGESTERONE
     Indication: ASSISTED FERTILISATION
     Route: 067

REACTIONS (3)
  - Abortion infected [Unknown]
  - Urinary tract infection [Unknown]
  - Bacteraemia [Unknown]
